FAERS Safety Report 20910453 (Version 2)
Quarter: 2022Q3

REPORT INFORMATION
  Report Type: Spontaneous
  Country: TR (occurrence: TR)
  Receive Date: 20220603
  Receipt Date: 20220725
  Transmission Date: 20221027
  Serious: No
  Sender: FDA-Public Use
  Company Number: TR-TOLMAR, INC.-22TR034865

PATIENT
  Age: 63 Year
  Sex: Male

DRUGS (2)
  1. ELIGARD [Suspect]
     Active Substance: LEUPROLIDE ACETATE
     Indication: Prostate cancer
     Dosage: 45 MILLIGRAM
     Dates: start: 20220525
  2. ELIGARD [Suspect]
     Active Substance: LEUPROLIDE ACETATE
     Dosage: 45 MILLIGRAM

REACTIONS (4)
  - Wrong technique in product usage process [Unknown]
  - Intercepted product administration error [Unknown]
  - Syringe issue [Unknown]
  - Needle issue [Unknown]

NARRATIVE: CASE EVENT DATE: 20220525
